FAERS Safety Report 9426579 (Version 1)
Quarter: 2013Q3

REPORT INFORMATION
  Report Type: Spontaneous
  Country: US (occurrence: US)
  Receive Date: 20130730
  Receipt Date: 20130730
  Transmission Date: 20140515
  Serious: No
  Sender: FDA-Public Use
  Company Number: US-PFIZER INC-2013220132

PATIENT
  Age: 69 Year
  Sex: Male

DRUGS (1)
  1. INLYTA [Suspect]
     Indication: NEOPLASM MALIGNANT
     Dosage: 3 MG, 2X/DAY
     Route: 048
     Dates: start: 20130427

REACTIONS (4)
  - Dysgeusia [Unknown]
  - Glossitis [Unknown]
  - Diarrhoea [Unknown]
  - Fatigue [Unknown]
